FAERS Safety Report 4315523-3 (Version None)
Quarter: 2004Q1

REPORT INFORMATION
  Report Type: 
  Country: None (occurrence: None)
  Receive Date: 20040311
  Receipt Date: 20030314
  Transmission Date: 20041129
  Serious: Yes (Hospitalization)
  Sender: FDA-Public Use
  Company Number: US-ROCHE-334052

PATIENT
  Age: 57 Year
  Sex: Male
  Weight: 90.7 kg

DRUGS (7)
  1. VALCYTE [Suspect]
     Route: 048
     Dates: start: 20020615, end: 20030115
  2. VALCYTE [Suspect]
     Route: 048
     Dates: start: 20030315
  3. CELLCEPT [Suspect]
     Indication: HEART TRANSPLANT
     Route: 048
     Dates: start: 20001224, end: 20030315
  4. PROGRAF [Concomitant]
     Indication: HEART TRANSPLANT
     Route: 048
  5. PREDNISONE [Concomitant]
     Route: 048
  6. SYNTHROID [Concomitant]
     Indication: HYPOTHYROIDISM
     Route: 048
  7. ANTIBIOTICS NOS [Concomitant]
     Indication: INFECTION

REACTIONS (7)
  - COLON CANCER [None]
  - CYTOMEGALOVIRUS INFECTION [None]
  - DIZZINESS [None]
  - FATIGUE [None]
  - HEADACHE [None]
  - INSOMNIA [None]
  - WHITE BLOOD CELL COUNT DECREASED [None]
